FAERS Safety Report 8763878 (Version 4)
Quarter: 2013Q1

REPORT INFORMATION
  Report Type: Spontaneous
  Country: AU (occurrence: AU)
  Receive Date: 20120831
  Receipt Date: 20130107
  Transmission Date: 20140127
  Serious: Yes (Other)
  Sender: FDA-Public Use
  Company Number: PHHY2012AU064522

PATIENT
  Sex: Male

DRUGS (1)
  1. STALEVO [Suspect]
     Dosage: 200/100/25 MG, UNK
     Route: 048
     Dates: start: 201006

REACTIONS (2)
  - Medication residue present [Recovered/Resolved]
  - Condition aggravated [Recovering/Resolving]
